FAERS Safety Report 4285981-1 (Version None)
Quarter: 2004Q1

REPORT INFORMATION
  Report Type: 
  Country: None (occurrence: None)
  Receive Date: 20040205
  Receipt Date: 20040121
  Transmission Date: 20041129
  Serious: Yes (Life-Threatening, Hospitalization, Disabling, Other)
  Sender: FDA-Public Use
  Company Number: WAES 0401USA01571

PATIENT
  Age: 79 Year
  Sex: Female
  Weight: 91 kg

DRUGS (4)
  1. FOSAMAX [Suspect]
     Indication: OSTEOPOROSIS
     Route: 048
     Dates: start: 20030301, end: 20031109
  2. LIPITOR [Concomitant]
     Indication: HYPERCHOLESTEROLAEMIA
     Route: 048
     Dates: start: 20010101
  3. REMERON [Concomitant]
     Indication: INSOMNIA
     Route: 048
     Dates: start: 20020101
  4. REMERON [Concomitant]
     Indication: DEPRESSION
     Route: 048
     Dates: start: 20020101

REACTIONS (2)
  - GASTROINTESTINAL ARTERIOVENOUS MALFORMATION [None]
  - GASTROINTESTINAL HAEMORRHAGE [None]
